FAERS Safety Report 5927731-6 (Version None)
Quarter: 2008Q4

REPORT INFORMATION
  Report Type: 
  Country: None (occurrence: None)
  Receive Date: 20081023
  Receipt Date: 20081017
  Transmission Date: 20090506
  Serious: Yes (Hospitalization)
  Sender: FDA-Public Use
  Company Number: FR-BRISTOL-MYERS SQUIBB COMPANY-14379549

PATIENT
  Age: 63 Year
  Sex: Male

DRUGS (3)
  1. GLUCOPHAGE [Suspect]
     Route: 048
  2. ARTOTEC [Suspect]
     Route: 048
     Dates: start: 20080901, end: 20080901
  3. ALTEIS [Suspect]
     Route: 048
     Dates: start: 20080615, end: 20080917

REACTIONS (2)
  - CONDITION AGGRAVATED [None]
  - THROMBOCYTOPENIC PURPURA [None]
